FAERS Safety Report 13352928 (Version 1)
Quarter: 2017Q1

REPORT INFORMATION
  Report Type: Spontaneous
  Country: JP (occurrence: JP)
  Receive Date: 20170320
  Receipt Date: 20170320
  Transmission Date: 20170429
  Serious: Yes (Other)
  Sender: FDA-Public Use
  Company Number: PHHY2017JP036011

PATIENT
  Age: 72 Year
  Sex: Female

DRUGS (2)
  1. AMPICILLIN, SULBACTAM [Suspect]
     Active Substance: AMPICILLIN SODIUM\SULBACTAM SODIUM
     Indication: PERITONITIS
     Route: 065
  2. AMPICILLIN, SULBACTAM [Suspect]
     Active Substance: AMPICILLIN SODIUM\SULBACTAM SODIUM
     Indication: GASTRIC PERFORATION

REACTIONS (1)
  - Linear IgA disease [Recovered/Resolved]
